FAERS Safety Report 12921409 (Version 2)
Quarter: 2016Q4

REPORT INFORMATION
  Report Type: Other
  Country: FR (occurrence: FR)
  Receive Date: 20161108
  Receipt Date: 20161116
  Transmission Date: 20170207
  Serious: Yes (Other)
  Sender: FDA-Public Use
  Company Number: FR-IMPAX LABORATORIES, INC-2016-IPXL-01529

PATIENT
  Age: 46 Year
  Sex: Female

DRUGS (12)
  1. DIPROSONE [Concomitant]
     Active Substance: BETAMETHASONE DIPROPIONATE
     Indication: CUTANEOUS LARVA MIGRANS
     Dosage: UNK
     Route: 065
     Dates: start: 20160823, end: 20160825
  2. AERIUS [Concomitant]
     Active Substance: DESLORATADINE
     Indication: PRURITUS
     Dosage: UNK
     Route: 065
     Dates: start: 201608
  3. PARACETAMOL [Concomitant]
     Active Substance: ACETAMINOPHEN
     Indication: RASH
     Dosage: UNK
     Route: 065
     Dates: start: 201608
  4. CELESTENE [Concomitant]
     Active Substance: BETAMETHASONE
     Indication: CONDITION AGGRAVATED
     Dosage: UNK
     Route: 065
     Dates: start: 201608, end: 20160819
  5. IBUPROFEN. [Concomitant]
     Active Substance: IBUPROFEN
     Indication: PRURITUS
     Dosage: UNK
     Route: 065
     Dates: start: 201608
  6. STROMECTOL [Suspect]
     Active Substance: IVERMECTIN
     Indication: CUTANEOUS LARVA MIGRANS
     Dosage: 4 DOSAGE FORM(S) DAILY
     Route: 048
     Dates: start: 20160823, end: 20160823
  7. CELESTENE [Concomitant]
     Active Substance: BETAMETHASONE
     Indication: PRURITUS
  8. HYDROXYZINE [Concomitant]
     Active Substance: HYDROXYZINE\HYDROXYZINE HYDROCHLORIDE
     Indication: CONDITION AGGRAVATED
     Dosage: UNK
     Route: 065
     Dates: start: 201608
  9. HYDROXYZINE [Concomitant]
     Active Substance: HYDROXYZINE\HYDROXYZINE HYDROCHLORIDE
     Indication: PRURITUS
  10. ALBENZA [Suspect]
     Active Substance: ALBENDAZOLE
     Indication: CUTANEOUS LARVA MIGRANS
     Dosage: 400 MG, BID
     Route: 048
     Dates: start: 20160825, end: 20160827
  11. PYOSTACINE [Concomitant]
     Active Substance: PRISTINAMYCIN
     Indication: CONDITION AGGRAVATED
     Dosage: 500 UNK, UNK
     Route: 065
     Dates: start: 201608, end: 20160819
  12. PYOSTACINE [Concomitant]
     Active Substance: PRISTINAMYCIN
     Indication: PRURITUS

REACTIONS (4)
  - Madarosis [Not Recovered/Not Resolved]
  - Off label use [Unknown]
  - Alopecia [Not Recovered/Not Resolved]
  - Hypotrichosis [Not Recovered/Not Resolved]

NARRATIVE: CASE EVENT DATE: 20160825
